FAERS Safety Report 4791110-8 (Version None)
Quarter: 2005Q4

REPORT INFORMATION
  Report Type: 
  Country: None (occurrence: None)
  Receive Date: 20051007
  Receipt Date: 20050927
  Transmission Date: 20060501
  Serious: Yes (Hospitalization)
  Sender: FDA-Public Use
  Company Number: FR-BRISTOL-MYERS SQUIBB COMPANY-13126248

PATIENT
  Age: 36 Year
  Sex: Male

DRUGS (5)
  1. AMIKLIN POWDER [Suspect]
     Indication: INFECTION
     Route: 042
     Dates: start: 20050624, end: 20050629
  2. AXEPIM [Suspect]
     Indication: INFECTION
     Route: 042
     Dates: start: 20050627, end: 20050628
  3. TAZOCILLINE [Suspect]
     Indication: INFECTION
     Route: 042
     Dates: start: 20050624, end: 20050627
  4. FLAGYL [Suspect]
     Indication: INFECTION
     Route: 042
     Dates: start: 20050625, end: 20050629
  5. TARGOCID [Suspect]
     Indication: INFECTION
     Route: 042
     Dates: start: 20050628, end: 20050629

REACTIONS (1)
  - DERMATITIS EXFOLIATIVE [None]
